FAERS Safety Report 8457336-7 (Version None)
Quarter: 2012Q2

REPORT INFORMATION
  Report Type: 
  Country: None (occurrence: None)
  Receive Date: 20120621
  Receipt Date: 20120606
  Transmission Date: 20120825
  Serious: No
  Sender: FDA-Public Use
  Company Number: US-ASTRAZENECA-2011SE33440

PATIENT
  Age: 67 Year
  Sex: Male

DRUGS (7)
  1. TOPROL-XL [Suspect]
     Indication: HYPERTENSION
     Route: 048
     Dates: start: 20110413
  2. TOPROL-XL [Suspect]
     Indication: ATRIAL FIBRILLATION
     Route: 048
     Dates: start: 20110413
  3. TOPROL-XL [Suspect]
     Route: 048
  4. NEXIUM [Suspect]
     Indication: GASTROOESOPHAGEAL REFLUX DISEASE
     Route: 048
  5. WARFARIN SODIUM [Concomitant]
  6. TOPROL-XL [Suspect]
     Route: 048
  7. NEXIUM [Suspect]
     Route: 048

REACTIONS (8)
  - DRUG PRESCRIBING ERROR [None]
  - INTENTIONAL DRUG MISUSE [None]
  - ABNORMAL DREAMS [None]
  - FEELING ABNORMAL [None]
  - INSOMNIA [None]
  - SINUSITIS [None]
  - HEADACHE [None]
  - HYPERHIDROSIS [None]
